FAERS Safety Report 9699774 (Version 1)
Quarter: 2013Q4

REPORT INFORMATION
  Report Type: Spontaneous
  Country: US (occurrence: US)
  Receive Date: 20131120
  Receipt Date: 20131120
  Transmission Date: 20140711
  Serious: Yes (Other)
  Sender: FDA-Public Use
  Company Number: US-009507513-1311USA007772

PATIENT
  Sex: Female

DRUGS (1)
  1. SINGULAIR [Suspect]
     Indication: ASTHMA
     Dosage: 1 QD
     Route: 048

REACTIONS (8)
  - Acne [Unknown]
  - Pyrexia [Unknown]
  - Rash pruritic [Unknown]
  - Swelling [Unknown]
  - Abdominal pain upper [Unknown]
  - Dyspnoea [Unknown]
  - Irritable bowel syndrome [Unknown]
  - Pain [Unknown]
